FAERS Safety Report 5113452-9 (Version None)
Quarter: 2006Q3

REPORT INFORMATION
  Report Type: 
  Country: None (occurrence: None)
  Receive Date: 20060920
  Receipt Date: 20060905
  Transmission Date: 20061208
  Serious: Yes (Life-Threatening)
  Sender: FDA-Public Use
  Company Number: 230565K06CAN

PATIENT
  Sex: Female

DRUGS (1)
  1. REBIF [Suspect]
     Indication: RELAPSING-REMITTING MULTIPLE SCLEROSIS
     Dates: start: 19990701

REACTIONS (3)
  - BRAIN NEOPLASM MALIGNANT [None]
  - CONDITION AGGRAVATED [None]
  - MULTIPLE SCLEROSIS [None]
